FAERS Safety Report 8165248-1 (Version None)
Quarter: 2012Q1

REPORT INFORMATION
  Report Type: 
  Country: None (occurrence: None)
  Receive Date: 20120222
  Receipt Date: 20120222
  Transmission Date: 20120608
  Serious: Yes (Other)
  Sender: FDA-Public Use
  Company Number: None

PATIENT
  Sex: Female
  Weight: 8.1647 kg

DRUGS (2)
  1. BUDESONIDE [Suspect]
     Indication: WHEEZING
     Dosage: 3ML/SUSPENSION 1-2 X/DAY NEBULIZER/INH
     Route: 055
     Dates: start: 20120115, end: 20120127
  2. BUDESONIDE [Suspect]
     Indication: COUGH
     Dosage: 3ML/SUSPENSION 1-2 X/DAY NEBULIZER/INH
     Route: 055
     Dates: start: 20120115, end: 20120127

REACTIONS (3)
  - TONGUE DISORDER [None]
  - CHEILITIS [None]
  - ACROCHORDON [None]
